FAERS Safety Report 25300377 (Version 1)
Quarter: 2025Q2

REPORT INFORMATION
  Report Type: Spontaneous
  Country: US (occurrence: None)
  Receive Date: 20250509
  Receipt Date: 20250509
  Transmission Date: 20250716
  Serious: No
  Sender: FDA-CTU
  Company Number: None

PATIENT
  Sex: Female

DRUGS (1)
  1. DALFAMPRIDINE [Suspect]
     Active Substance: DALFAMPRIDINE
     Indication: Multiple sclerosis
     Dosage: 10 MG TWICE A DAY ORAL ?
     Route: 048
     Dates: start: 20250410

REACTIONS (6)
  - Fatigue [None]
  - Product dose omission issue [None]
  - Memory impairment [None]
  - Balance disorder [None]
  - Fall [None]
  - Treatment noncompliance [None]
